FAERS Safety Report 7831101-3 (Version None)
Quarter: 2011Q4

REPORT INFORMATION
  Report Type: 
  Country: None (occurrence: None)
  Receive Date: 20111021
  Receipt Date: 20111006
  Transmission Date: 20120403
  Serious: Yes (Other)
  Sender: FDA-Public Use
  Company Number: US-ELI_LILLY_AND_COMPANY-US201110005384

PATIENT
  Sex: Female

DRUGS (16)
  1. LISINOPRIL [Concomitant]
  2. NEXIUM [Concomitant]
  3. LOVASTATIN [Concomitant]
  4. FORTEO [Suspect]
     Indication: OSTEOPOROSIS
     Dosage: UNK, QD
     Route: 058
  5. ASPIRIN [Concomitant]
     Dosage: UNK, QD
  6. ORPHENADRINE CITRATE [Concomitant]
  7. LOVAZA [Concomitant]
  8. ROPINIROLE HYDROCHLORIDE [Concomitant]
  9. HYDROCODONE BITARTRATE [Concomitant]
  10. IBUPROFEN [Concomitant]
  11. CELEBREX [Concomitant]
  12. LAXATIVES [Concomitant]
  13. SERTRALINE HYDROCHLORIDE [Concomitant]
  14. NITROSTAT [Concomitant]
  15. VITAMIN D [Concomitant]
  16. CALCIUM CARBONATE [Concomitant]

REACTIONS (10)
  - BLINDNESS UNILATERAL [None]
  - DRUG DOSE OMISSION [None]
  - EYE DISORDER [None]
  - VISUAL FIELD DEFECT [None]
  - FEAR [None]
  - BALANCE DISORDER [None]
  - HYPOAESTHESIA [None]
  - DRUG INEFFECTIVE [None]
  - DIZZINESS [None]
  - TREMOR [None]
